FAERS Safety Report 4869596-X (Version None)
Quarter: 2005Q4

REPORT INFORMATION
  Report Type: 
  Country: None (occurrence: None)
  Receive Date: 20051227
  Receipt Date: 20051220
  Transmission Date: 20060501
  Serious: Yes (Hospitalization)
  Sender: FDA-Public Use
  Company Number: 2005AP06566

PATIENT
  Age: 73 Year
  Sex: Male

DRUGS (5)
  1. INDERAL LA [Suspect]
     Indication: AORTIC DISSECTION
     Dosage: PO, FORMULATION: CAPS_CR
     Route: 048
     Dates: start: 20020826, end: 20050903
  2. NORVASC [Suspect]
     Indication: AORTIC DISSECTION
     Dosage: PO
     Route: 048
     Dates: start: 20020819, end: 20020903
  3. ENALAPRIL MALEATE [Suspect]
     Indication: AORTIC DISSECTION
     Dosage: PO
     Route: 048
     Dates: start: 20020822, end: 20020903
  4. LASIX [Suspect]
     Indication: AORTIC DISSECTION
     Dosage: PO
     Route: 048
     Dates: start: 20020831, end: 20020903
  5. LEVOFLOXACIN [Suspect]
     Indication: UPPER RESPIRATORY TRACT INFLAMMATION
     Dosage: PO
     Route: 048
     Dates: start: 20020830, end: 20020903

REACTIONS (3)
  - ANAEMIA [None]
  - CYTOMEGALOVIRUS INFECTION [None]
  - TOXIC EPIDERMAL NECROLYSIS [None]
